FAERS Safety Report 24435267 (Version 1)
Quarter: 2024Q4

REPORT INFORMATION
  Report Type: Report from Study
  Country: NL (occurrence: NL)
  Receive Date: 20241015
  Receipt Date: 20241015
  Transmission Date: 20250115
  Serious: Yes (Death)
  Sender: ABBVIE
  Company Number: NL-ABBVIE-5961729

PATIENT
  Age: 87 Year
  Sex: Female

DRUGS (5)
  1. CARBIDOPA\LEVODOPA [Suspect]
     Active Substance: CARBIDOPA\LEVODOPA
     Indication: Parkinson^s disease
     Dosage: MD: 8.5 ML, CD: 5.7 ML/H, ED: 4.5 ML?REMAINS AT 24 HOURS
     Route: 050
     Dates: start: 20241002, end: 20241007
  2. CARBIDOPA\LEVODOPA [Suspect]
     Active Substance: CARBIDOPA\LEVODOPA
     Dosage: REMAINS AT 24 HOURS
     Route: 050
     Dates: start: 20170223
  3. NEUPRO [Concomitant]
     Active Substance: ROTIGOTINE
     Indication: Parkinson^s disease
  4. DESMOPRESSIN [Concomitant]
     Active Substance: DESMOPRESSIN
     Indication: Pollakiuria
  5. AMOXICILLIN\CLAVULANIC ACID [Concomitant]
     Active Substance: AMOXICILLIN\CLAVULANIC ACID
     Indication: Dehydration
     Dosage: TIME INTERVAL: 0.33333333 DAYS: 500/125MG
     Route: 048
     Dates: start: 20200202, end: 20200209

REACTIONS (1)
  - Euthanasia [Fatal]
